FAERS Safety Report 16787506 (Version 2)
Quarter: 2020Q2

REPORT INFORMATION
  Report Type: Spontaneous
  Country: US (occurrence: US)
  Receive Date: 20190909
  Receipt Date: 20200518
  Transmission Date: 20200713
  Serious: Yes (Other)
  Sender: FDA-Public Use
  Company Number: US-BAUSCH-BL-2019-024779

PATIENT
  Sex: Male

DRUGS (5)
  1. TRULANCE [Suspect]
     Active Substance: PLECANATIDE
     Dosage: DOSE REDUCED, DECIDED TO CHANGE HIS DOSING FREQUENCY FROM ONCE DAILY TO EVERY OTHER DAY
     Route: 048
  2. METOPROLOL. [Concomitant]
     Active Substance: METOPROLOL
     Indication: PRODUCT USED FOR UNKNOWN INDICATION
  3. LISINOPRIL. [Concomitant]
     Active Substance: LISINOPRIL
     Indication: PRODUCT USED FOR UNKNOWN INDICATION
  4. TRULANCE [Suspect]
     Active Substance: PLECANATIDE
     Indication: CONSTIPATION
     Dosage: APPROXIMATELY 3 YEARS AGO
     Route: 048
     Dates: start: 2017
  5. TIROSINT [Concomitant]
     Active Substance: LEVOTHYROXINE SODIUM
     Indication: PRODUCT USED FOR UNKNOWN INDICATION

REACTIONS (7)
  - Weight increased [Unknown]
  - Therapeutic product effect incomplete [Unknown]
  - Polyp [Unknown]
  - Arterial occlusive disease [Unknown]
  - Hunger [Unknown]
  - Inappropriate schedule of product administration [Unknown]
  - Infrequent bowel movements [Unknown]

NARRATIVE: CASE EVENT DATE: 2019
